FAERS Safety Report 13387376 (Version 1)
Quarter: 2017Q1

REPORT INFORMATION
  Report Type: Spontaneous
  Country: GB (occurrence: GB)
  Receive Date: 20170330
  Receipt Date: 20170330
  Transmission Date: 20170429
  Serious: Yes (Other)
  Sender: FDA-Public Use
  Company Number: GB-MYLANLABS-2017M1019461

PATIENT

DRUGS (17)
  1. NAPROXEN. [Concomitant]
     Active Substance: NAPROXEN
     Indication: ANTIINFLAMMATORY THERAPY
     Dosage: WITH FOOD.
     Dates: start: 20150130
  2. ROSUVASTATIN. [Concomitant]
     Active Substance: ROSUVASTATIN
     Indication: BLOOD CHOLESTEROL INCREASED
     Dosage: AT NIGHT.
     Dates: start: 20150130
  3. COCODAMOL [Concomitant]
     Active Substance: ACETAMINOPHEN\CODEINE PHOSPHATE
     Dosage: TAKE 1 OR TWO UP TO FOUR TIMES A DAY.
     Dates: start: 20150130
  4. FUSIDIC ACID [Concomitant]
     Active Substance: FUSIDIC ACID
     Dosage: FOR MAXIMUM 7 DAYS.
     Dates: start: 20170301, end: 20170308
  5. HYDROCORTISONE. [Concomitant]
     Active Substance: HYDROCORTISONE
     Dosage: 1 DF, BID
     Dates: start: 20170222, end: 20170301
  6. LANSOPRAZOLE. [Suspect]
     Active Substance: LANSOPRAZOLE
     Dosage: UNK
     Dates: start: 20150130
  7. AMLODIPINE [Concomitant]
     Active Substance: AMLODIPINE BESYLATE
     Indication: HYPERTENSION
     Dosage: 1 DF, QD
     Dates: start: 20150130
  8. CANDESARTAN [Concomitant]
     Active Substance: CANDESARTAN
     Dosage: 1 DF, QD
     Dates: start: 20150130
  9. LAXIDO [Concomitant]
     Active Substance: POLYETHYLENE GLYCOL 3350\POTASSIUM CHLORIDE\SODIUM BICARBONATE\SODIUM CHLORIDE
     Dosage: ONE A DAY OR EVERY OTHER DAY.
     Dates: start: 20161209
  10. BENDROFLUMETHIAZIDE [Concomitant]
     Active Substance: BENDROFLUMETHIAZIDE
     Indication: HYPERTENSION
     Dosage: EACH MORNING.
     Dates: start: 20150130
  11. HIBISCRUB [Concomitant]
     Active Substance: CHLORHEXIDINE GLUCONATE
     Dosage: USE AS DIRECTED.
     Dates: start: 20160316
  12. METFORMIN [Concomitant]
     Active Substance: METFORMIN HYDROCHLORIDE
     Indication: DIABETES MELLITUS
     Dosage: WITH MEALS.
     Dates: start: 20150130
  13. TADALAFIL [Concomitant]
     Active Substance: TADALAFIL
     Dosage: USE AS DIRECTED.
     Dates: start: 20160720
  14. ALLOPURINOL. [Concomitant]
     Active Substance: ALLOPURINOL
     Indication: GOUT
     Dates: start: 20150130
  15. TESTOSTERONE. [Concomitant]
     Active Substance: TESTOSTERONE
     Dosage: AS DIRECTED.
     Dates: start: 20161021
  16. LANSOPRAZOLE. [Suspect]
     Active Substance: LANSOPRAZOLE
     Dosage: 60 MG, BID
     Dates: start: 201702
  17. CETIRIZINE [Concomitant]
     Active Substance: CETIRIZINE HYDROCHLORIDE
     Indication: HYPERSENSITIVITY
     Dosage: 1 DF, QD
     Dates: start: 20141010

REACTIONS (4)
  - Myalgia [Recovered/Resolved]
  - Vasculitic rash [Recovered/Resolved]
  - Arthralgia [Recovered/Resolved]
  - Hypersensitivity [Recovered/Resolved]

NARRATIVE: CASE EVENT DATE: 20170217
